FAERS Safety Report 6461111-2 (Version None)
Quarter: 2009Q4

REPORT INFORMATION
  Report Type: 
  Country: None (occurrence: None)
  Receive Date: 20091130
  Receipt Date: 20091118
  Transmission Date: 20100525
  Serious: Yes (Hospitalization)
  Sender: FDA-Public Use
  Company Number: B0608852A

PATIENT
  Sex: Female

DRUGS (8)
  1. CIBLOR [Suspect]
     Indication: ERYSIPELAS
     Dosage: 4TAB PER DAY
     Route: 048
     Dates: start: 20090923, end: 20090927
  2. CARDENSIEL [Concomitant]
     Route: 065
  3. LASILIX [Concomitant]
     Route: 065
  4. RENITEC [Concomitant]
     Route: 065
  5. PREDNISOLONE [Concomitant]
     Route: 065
  6. MOPRAL [Concomitant]
     Route: 065
  7. FOSAMAX [Concomitant]
     Route: 065
  8. CACIT D3 [Concomitant]
     Route: 065

REACTIONS (3)
  - PRURITUS [None]
  - PURPURA [None]
  - RASH ERYTHEMATOUS [None]
